FAERS Safety Report 8181735-4 (Version None)
Quarter: 2012Q1

REPORT INFORMATION
  Report Type: 
  Country: None (occurrence: None)
  Receive Date: 20120302
  Receipt Date: 20111122
  Transmission Date: 20120608
  Serious: Yes (Other)
  Sender: FDA-Public Use
  Company Number: US-AMGEN-USASP2011056773

PATIENT
  Age: 60 Year
  Sex: Female
  Weight: 68.027 kg

DRUGS (3)
  1. NPLATE [Suspect]
     Indication: IDIOPATHIC THROMBOCYTOPENIC PURPURA
     Dosage: 690 MUG, QWK
     Dates: start: 20110624, end: 20111021
  2. ANTINEOPLASTIC AGENTS [Concomitant]
     Indication: NEOPLASM MALIGNANT
  3. ANTINEOPLASTIC AGENTS [Concomitant]
     Indication: HEPATIC NEOPLASM

REACTIONS (1)
  - DRUG INEFFECTIVE [None]
